FAERS Safety Report 4322111-1 (Version None)
Quarter: 2004Q1

REPORT INFORMATION
  Report Type: 
  Country: None (occurrence: None)
  Receive Date: 20040323
  Receipt Date: 20040316
  Transmission Date: 20041129
  Serious: Yes (Hospitalization)
  Sender: FDA-Public Use
  Company Number: FR-GLAXOSMITHKLINE-B0326738A

PATIENT
  Age: 69 Year
  Sex: Female

DRUGS (6)
  1. AUGMENTIN [Suspect]
     Route: 048
     Dates: start: 20040101, end: 20040106
  2. CELESTENE [Suspect]
     Route: 048
     Dates: start: 20040101, end: 20040106
  3. LORAZEPAM [Concomitant]
     Route: 048
  4. ISOPTIN [Concomitant]
     Route: 065
  5. BRONCHODUAL [Concomitant]
     Route: 055
  6. FLIXOTIDE [Concomitant]
     Route: 055

REACTIONS (3)
  - CSF PROTEIN INCREASED [None]
  - CSF WHITE BLOOD CELL COUNT POSITIVE [None]
  - MENINGITIS ASEPTIC [None]
